FAERS Safety Report 4611419-8 (Version None)
Quarter: 2005Q2

REPORT INFORMATION
  Report Type: 
  Country: None (occurrence: None)
  Receive Date: 20050311
  Receipt Date: 20041118
  Transmission Date: 20051028
  Serious: No
  Sender: FDA-Public Use
  Company Number: 2004-BP-12470BP

PATIENT
  Age: 77 Year
  Weight: 78 kg

DRUGS (7)
  1. SPIRIVA [Suspect]
     Indication: CHRONIC OBSTRUCTIVE PULMONARY DISEASE
     Dosage: 18 MCG (18 MCG)
     Dates: start: 20041104
  2. FLOVENT [Concomitant]
  3. COMBIVENT [Concomitant]
  4. FLONASE [Concomitant]
  5. TRIAMTERENE AND HYDROCHLOROTHIAZIDE [Concomitant]
  6. COUMADIN [Concomitant]
  7. DARVOCET [Concomitant]

REACTIONS (1)
  - DYSPHONIA [None]
